FAERS Safety Report 6119543-8 (Version None)
Quarter: 2009Q1

REPORT INFORMATION
  Report Type: 
  Country: None (occurrence: None)
  Receive Date: 20090316
  Receipt Date: 20090311
  Transmission Date: 20090719
  Serious: Yes (Hospitalization)
  Sender: FDA-Public Use
  Company Number: B0521315A

PATIENT
  Age: 54 Year
  Sex: Female
  Weight: 59.5 kg

DRUGS (2)
  1. LAPATINIB [Suspect]
     Route: 048
     Dates: start: 20080307, end: 20080516
  2. CAPECITABINE [Suspect]
     Dosage: 3000MG PER DAY
     Dates: start: 20080307, end: 20080410

REACTIONS (5)
  - ANOREXIA [None]
  - DEHYDRATION [None]
  - DIARRHOEA [None]
  - NAUSEA [None]
  - PALMAR-PLANTAR ERYTHRODYSAESTHESIA SYNDROME [None]
